FAERS Safety Report 10395844 (Version 1)
Quarter: 2014Q1

REPORT INFORMATION
  Report Type: Spontaneous
  Country: US (occurrence: None)
  Receive Date: 20130107
  Receipt Date: 20130107
  Transmission Date: 20141002
  Serious: No
  Sender: FDA-Public Use
  Company Number: PHEH2012US010514

PATIENT
  Age: 34 Year
  Sex: Female

DRUGS (1)
  1. GILENYA ( FTY) CAPSULE, 0.5 MG [Suspect]
     Indication: MULTIPLE SCLEROSIS
     Route: 048
     Dates: start: 201203

REACTIONS (2)
  - Decreased interest [None]
  - Depression [None]
